FAERS Safety Report 16316108 (Version 1)
Quarter: 2019Q2

REPORT INFORMATION
  Report Type: Spontaneous
  Country: US (occurrence: US)
  Receive Date: 20190515
  Receipt Date: 20190515
  Transmission Date: 20190711
  Serious: Yes (Hospitalization, Other)
  Sender: FDA-Public Use
  Company Number: US-ELI_LILLY_AND_COMPANY-US201905002458

PATIENT
  Sex: Male

DRUGS (1)
  1. ALIMTA [Suspect]
     Active Substance: PEMETREXED DISODIUM
     Indication: PRODUCT USED FOR UNKNOWN INDICATION
     Dosage: UNK, UNKNOWN
     Route: 065

REACTIONS (6)
  - Cytopenia [Not Recovered/Not Resolved]
  - Dehydration [Unknown]
  - Renal failure [Not Recovered/Not Resolved]
  - Dysphagia [Unknown]
  - Vomiting [Unknown]
  - Nausea [Unknown]
